FAERS Safety Report 10266038 (Version 3)
Quarter: 2014Q3

REPORT INFORMATION
  Report Type: Spontaneous
  Country: DE (occurrence: DE)
  Receive Date: 20140627
  Receipt Date: 20140718
  Transmission Date: 20150326
  Serious: Yes (Life-Threatening, Hospitalization, Disabling, Other)
  Sender: FDA-Public Use
  Company Number: DE-BAYER-2014-095481

PATIENT
  Age: 51 Year
  Sex: Female

DRUGS (1)
  1. BETAFERON [Suspect]
     Active Substance: INTERFERON BETA-1B
     Indication: MULTIPLE SCLEROSIS
     Dosage: UNK
     Route: 058
     Dates: start: 2004, end: 201404

REACTIONS (14)
  - Thrombocytopenia [None]
  - Blood urea increased [Not Recovered/Not Resolved]
  - Oedema peripheral [Not Recovered/Not Resolved]
  - Haemolysis [Not Recovered/Not Resolved]
  - Pleural effusion [None]
  - Chorioretinitis [None]
  - Blood creatinine increased [Not Recovered/Not Resolved]
  - Renal failure [Not Recovered/Not Resolved]
  - Thrombotic microangiopathy [None]
  - Chest X-ray abnormal [None]
  - Haemolytic uraemic syndrome [Not Recovered/Not Resolved]
  - Hypertension [Not Recovered/Not Resolved]
  - Proteinuria [Not Recovered/Not Resolved]
  - Retroperitoneal haematoma [None]

NARRATIVE: CASE EVENT DATE: 2014
